FAERS Safety Report 9307084 (Version 1)
Quarter: 2013Q2

REPORT INFORMATION
  Report Type: Spontaneous
  Country: ES (occurrence: ES)
  Receive Date: 20130523
  Receipt Date: 20130523
  Transmission Date: 20140414
  Serious: Yes (Other)
  Sender: FDA-Public Use
  Company Number: ES-B.I. PHARMACEUTICALS,INC./RIDGEFIELD-2013-BI-14412YA

PATIENT
  Age: 82 Year
  Sex: Male

DRUGS (8)
  1. TAMSULOSINA [Suspect]
     Indication: BENIGN PROSTATIC HYPERPLASIA
     Dosage: FORMULATION: ORODISPERSIBLE CR TABLET
     Route: 048
     Dates: start: 2005
  2. CONDRO SAN [Concomitant]
     Dosage: 400 MG
  3. LUMIGAN [Concomitant]
     Dosage: DAILY DOSE: 0.1 MG/ML; ONE DROP
  4. METFORMINA [Concomitant]
     Dosage: 850 MG
  5. NEXIUM-MUPS [Concomitant]
     Dosage: 40 MG
  6. PLAVIX [Concomitant]
     Dosage: 75 MG
  7. PREVENCOR [Concomitant]
     Dosage: 40 MG
  8. VISCOFRESH [Concomitant]
     Dosage: DAILY DOSE: 0.5PERCENT; ONE DROP

REACTIONS (2)
  - Angle closure glaucoma [Not Recovered/Not Resolved]
  - Floppy iris syndrome [Not Recovered/Not Resolved]
